FAERS Safety Report 21494243 (Version 2)
Quarter: 2022Q4

REPORT INFORMATION
  Report Type: Spontaneous
  Country: CA (occurrence: None)
  Receive Date: 20221021
  Receipt Date: 20221212
  Transmission Date: 20230112
  Serious: Yes (Other)
  Sender: FDA-Public Use
  Company Number: 2022A352064

PATIENT
  Age: 61 Year
  Sex: Female
  Weight: 71 kg

DRUGS (5)
  1. ANASTROZOLE [Suspect]
     Active Substance: ANASTROZOLE
     Indication: Breast cancer metastatic
     Route: 048
  2. FULVESTRANT [Suspect]
     Active Substance: FULVESTRANT
     Indication: Breast cancer metastatic
     Route: 030
  3. PALBOCICLIB [Suspect]
     Active Substance: PALBOCICLIB
     Indication: Breast cancer metastatic
     Route: 065
  4. PACLITAXEL [Suspect]
     Active Substance: PACLITAXEL
     Indication: Breast cancer metastatic
     Route: 065
  5. PIQRAY [Suspect]
     Active Substance: ALPELISIB
     Indication: Breast cancer metastatic
     Route: 048

REACTIONS (3)
  - Breast cancer metastatic [Unknown]
  - Malignant neoplasm progression [Unknown]
  - Drug ineffective [Unknown]
